FAERS Safety Report 10743405 (Version 1)
Quarter: 2015Q1

REPORT INFORMATION
  Report Type: Spontaneous
  Country: NO (occurrence: NO)
  Receive Date: 20150128
  Receipt Date: 20150128
  Transmission Date: 20150721
  Serious: Yes (Life-Threatening)
  Sender: FDA-Public Use
  Company Number: NO-009507513-1501NOR006828

PATIENT
  Sex: Female
  Weight: 57 kg

DRUGS (9)
  1. INUXAIR [Concomitant]
     Route: 055
  2. MAREVAN [Interacting]
     Active Substance: WARFARIN SODIUM
     Indication: ATRIAL FIBRILLATION
     Route: 048
  3. LEVAXIN [Concomitant]
     Active Substance: LEVOTHYROXINE SODIUM
     Route: 048
  4. BURINEX [Concomitant]
     Active Substance: BUMETANIDE
     Route: 048
  5. METOPROLOL SANDOZ (METOPROLOL SUCCINATE) [Concomitant]
     Route: 048
  6. VENTOLIN [Concomitant]
     Active Substance: ALBUTEROL SULFATE
     Route: 055
  7. SIMVASTATIN. [Suspect]
     Active Substance: SIMVASTATIN
     Dosage: 40 MG, QD
     Route: 048
     Dates: start: 20141210, end: 20150104
  8. TRIATEC (RAMIPRIL) [Concomitant]
     Active Substance: RAMIPRIL
     Route: 048
  9. LANOXIN [Concomitant]
     Active Substance: DIGOXIN
     Route: 048

REACTIONS (1)
  - Splenic haemorrhage [Recovering/Resolving]
